FAERS Safety Report 14065434 (Version 1)
Quarter: 2017Q4

REPORT INFORMATION
  Report Type: Spontaneous
  Country: FR (occurrence: FR)
  Receive Date: 20171009
  Receipt Date: 20171009
  Transmission Date: 20180321
  Serious: Yes (Other)
  Sender: FDA-Public Use
  Company Number: FR-TEVA-811361ROM

PATIENT
  Age: 23 Year
  Sex: Male

DRUGS (8)
  1. PRAMIPEXOLE. [Suspect]
     Active Substance: PRAMIPEXOLE
     Indication: HYPERTONIA
     Dosage: 1.05 MILLIGRAM DAILY;
     Route: 065
  2. SERTRALINE [Concomitant]
     Active Substance: SERTRALINE HYDROCHLORIDE
     Indication: ANXIETY
  3. CYAMEMAZINE [Suspect]
     Active Substance: CYAMEMAZINE
     Indication: ANXIETY
  4. PRAMIPEXOLE. [Suspect]
     Active Substance: PRAMIPEXOLE
     Indication: AKINESIA
  5. LEVODOPA [Suspect]
     Active Substance: LEVODOPA
     Indication: HYPERTONIA
     Dosage: 150 MILLIGRAM DAILY;
     Route: 065
  6. SERTRALINE [Concomitant]
     Active Substance: SERTRALINE HYDROCHLORIDE
     Indication: MAJOR DEPRESSION
     Route: 065
  7. CYAMEMAZINE [Suspect]
     Active Substance: CYAMEMAZINE
     Indication: MAJOR DEPRESSION
     Route: 065
  8. LEVODOPA [Suspect]
     Active Substance: LEVODOPA
     Indication: AKINESIA

REACTIONS (6)
  - Psychotic disorder [Unknown]
  - Dystonia [Recovering/Resolving]
  - Obsessive-compulsive disorder [Unknown]
  - Impulsive behaviour [Unknown]
  - Dopamine dysregulation syndrome [Unknown]
  - Dyskinesia [Unknown]
